FAERS Safety Report 23972078 (Version 1)
Quarter: 2024Q2

REPORT INFORMATION
  Report Type: Spontaneous
  Country: US (occurrence: None)
  Receive Date: 20240612
  Receipt Date: 20240612
  Transmission Date: 20240716
  Serious: Yes (Other)
  Sender: FDA-Public Use
  Company Number: None

PATIENT
  Age: 33 Year
  Sex: Female

DRUGS (1)
  1. WEGOVY [Suspect]
     Active Substance: SEMAGLUTIDE
     Dosage: OTHER FREQUENCY : ONCE WEEKLY;?
     Route: 058

REACTIONS (5)
  - Palpitations [None]
  - Suicidal ideation [None]
  - Incorrect dose administered [None]
  - Dizziness [None]
  - Depressed mood [None]

NARRATIVE: CASE EVENT DATE: 20240608
